FAERS Safety Report 10181440 (Version 1)
Quarter: 2014Q2

REPORT INFORMATION
  Report Type: Spontaneous
  Country: US (occurrence: US)
  Receive Date: 20140519
  Receipt Date: 20140519
  Transmission Date: 20141212
  Serious: No
  Sender: FDA-Public Use
  Company Number: US-ASTRAZENECA-2013SE62023

PATIENT
  Sex: Female

DRUGS (7)
  1. ATACAND HCT [Suspect]
     Indication: BLOOD PRESSURE
     Dosage: CANADA
     Route: 048
  2. ATACAND HCT [Suspect]
     Indication: BLOOD PRESSURE
     Dosage: 16 MG 12.5 MG DAILY
     Route: 048
     Dates: start: 2005, end: 201301
  3. CANDESARTAN (NON AZ PRODUCT) [Suspect]
     Indication: BLOOD PRESSURE
     Dosage: PMS
     Route: 065
     Dates: start: 201301
  4. CANDESARTAN (NON AZ PRODUCT) [Suspect]
     Indication: BLOOD PRESSURE
     Dosage: SANDOZ
     Route: 065
  5. SIMVISTATIN [Concomitant]
     Indication: BLOOD CHOLESTEROL ABNORMAL
  6. COVERSYL [Concomitant]
     Indication: BLOOD PRESSURE
     Dosage: 8 MG 2.5 MG DAILY
  7. MANY OTHER BLOOD PRESSURE MEDICATIONS [Concomitant]

REACTIONS (6)
  - Hypertension [Unknown]
  - Visual impairment [Unknown]
  - Hypoaesthesia [Unknown]
  - Adverse drug reaction [Unknown]
  - Drug intolerance [Unknown]
  - Drug ineffective [Unknown]
